FAERS Safety Report 20727215 (Version 2)
Quarter: 2022Q2

REPORT INFORMATION
  Report Type: Spontaneous
  Country: AU (occurrence: AU)
  Receive Date: 20220419
  Receipt Date: 20220425
  Transmission Date: 20220721
  Serious: Yes (Hospitalization, Other)
  Sender: FDA-Public Use
  Company Number: AU-NOVARTISPH-NVSC2022AU089405

PATIENT
  Age: 89 Year
  Sex: Male

DRUGS (17)
  1. RAMIPRIL [Suspect]
     Active Substance: RAMIPRIL
     Indication: Cardiac failure
     Dosage: 1.25 MG, QD
     Route: 048
     Dates: start: 20200619, end: 20220210
  2. EPLERENONE [Suspect]
     Active Substance: EPLERENONE
     Indication: Product used for unknown indication
     Dosage: 25 MG, QD
     Route: 048
     Dates: start: 2018, end: 20220210
  3. EPLERENONE [Suspect]
     Active Substance: EPLERENONE
     Dosage: UNK
     Route: 065
     Dates: start: 20220212
  4. FUROSEMIDE [Suspect]
     Active Substance: FUROSEMIDE
     Indication: Cardiac failure
     Dosage: 160 MG, QD
     Route: 048
     Dates: start: 2017, end: 20220210
  5. FUROSEMIDE [Suspect]
     Active Substance: FUROSEMIDE
     Dosage: 180 MG, QD
     Route: 065
     Dates: start: 20220219
  6. FUROSEMIDE [Suspect]
     Active Substance: FUROSEMIDE
     Dosage: 120 MG
     Route: 048
     Dates: start: 20220213
  7. FUROSEMIDE [Suspect]
     Active Substance: FUROSEMIDE
     Dosage: 60 UNK
     Route: 048
  8. FUROSEMIDE [Suspect]
     Active Substance: FUROSEMIDE
     Dosage: 120 MG
     Route: 042
     Dates: start: 20220211
  9. FUROSEMIDE [Suspect]
     Active Substance: FUROSEMIDE
     Dosage: 60 MG
     Route: 048
     Dates: start: 20220212
  10. SULFAMETHOXAZOLE\TRIMETHOPRIM [Suspect]
     Active Substance: SULFAMETHOXAZOLE\TRIMETHOPRIM
     Indication: Wound infection
     Dosage: 160/80 MG
     Route: 065
     Dates: start: 20220118, end: 20220210
  11. BISOPROLOL [Concomitant]
     Active Substance: BISOPROLOL
     Indication: Hypertension
     Dosage: 2.5 MG, QD
     Route: 065
     Dates: start: 1995
  12. SPAN K [Concomitant]
     Indication: Product used for unknown indication
     Dosage: 600 MG, QD
     Route: 048
     Dates: start: 2018, end: 20220210
  13. OMEPRAZOLE [Concomitant]
     Active Substance: OMEPRAZOLE
     Indication: Gastrooesophageal reflux disease
     Dosage: 20 MG, QD
     Route: 048
     Dates: start: 2013, end: 20220210
  14. ATORVASTATIN [Concomitant]
     Active Substance: ATORVASTATIN
     Indication: Coronary artery disease
     Dosage: 20 MG, QD
     Route: 048
     Dates: start: 201509
  15. POTASSIUM CHLORIDE [Concomitant]
     Active Substance: POTASSIUM CHLORIDE
     Indication: Product used for unknown indication
     Dosage: 600 MG, QD
     Route: 048
  16. COLCHICINE [Concomitant]
     Active Substance: COLCHICINE
     Indication: Product used for unknown indication
     Dosage: UNK
     Route: 065
  17. CEFAZOLIN [Concomitant]
     Active Substance: CEFAZOLIN
     Indication: Product used for unknown indication
     Dosage: 2 MG
     Route: 042
     Dates: start: 20220211

REACTIONS (25)
  - Acute kidney injury [Recovered/Resolved with Sequelae]
  - Fall [Recovered/Resolved with Sequelae]
  - Psychiatric symptom [Unknown]
  - Oedema peripheral [Unknown]
  - Malaise [Unknown]
  - Feeling abnormal [Unknown]
  - Hypervolaemia [Recovered/Resolved with Sequelae]
  - Chronic kidney disease [Unknown]
  - Atrial fibrillation [Unknown]
  - Wound infection [Recovered/Resolved]
  - Balance disorder [Unknown]
  - Pain in extremity [Unknown]
  - Head injury [Unknown]
  - Injury [Unknown]
  - Asthenia [Unknown]
  - Wound [Recovered/Resolved]
  - Skin exfoliation [Unknown]
  - Localised infection [Unknown]
  - Cardiomegaly [Unknown]
  - Pleural effusion [Unknown]
  - Fatigue [Unknown]
  - Pain [Unknown]
  - Skin injury [Unknown]
  - Erythema [Unknown]
  - Amyloidosis senile [Unknown]

NARRATIVE: CASE EVENT DATE: 20200625
